FAERS Safety Report 7676803-7 (Version None)
Quarter: 2011Q3

REPORT INFORMATION
  Report Type: 
  Country: None (occurrence: None)
  Receive Date: 20110805
  Receipt Date: 20110721
  Transmission Date: 20111222
  Serious: Yes (Hospitalization, Other)
  Sender: FDA-Public Use
  Company Number: 2011MA009281

PATIENT
  Age: 5 Year
  Sex: Male

DRUGS (1)
  1. FEVERALL [Suspect]
     Indication: PYREXIA

REACTIONS (5)
  - HAEMOLYSIS [None]
  - VOMITING [None]
  - JAUNDICE [None]
  - HAEMATURIA [None]
  - DEHYDRATION [None]
